FAERS Safety Report 17325301 (Version 1)
Quarter: 2020Q1

REPORT INFORMATION
  Report Type: Spontaneous
  Country: US (occurrence: US)
  Receive Date: 20200124
  Receipt Date: 20200124
  Transmission Date: 20200409
  Serious: Yes (Other)
  Sender: FDA-Public Use
  Company Number: None

PATIENT
  Age: 28 Year
  Sex: Male

DRUGS (2)
  1. HUMIRA [Suspect]
     Active Substance: ADALIMUMAB
     Indication: CROHN^S DISEASE
     Route: 058
     Dates: start: 20200108
  2. HUMIRA [Suspect]
     Active Substance: ADALIMUMAB
     Dates: start: 20200108

REACTIONS (1)
  - Haematochezia [None]

NARRATIVE: CASE EVENT DATE: 20200123
